FAERS Safety Report 15519546 (Version 1)
Quarter: 2018Q4

REPORT INFORMATION
  Report Type: Report from Study
  Country: US (occurrence: US)
  Receive Date: 20181017
  Receipt Date: 20181017
  Transmission Date: 20190205
  Serious: No
  Sender: FDA-Public Use
  Company Number: US-AMGEN-USASL2018106101

PATIENT
  Sex: Female

DRUGS (1)
  1. REPATHA [Suspect]
     Active Substance: EVOLOCUMAB
     Indication: PRODUCT USED FOR UNKNOWN INDICATION
     Dosage: 140 MG, Q2WK
     Route: 058

REACTIONS (8)
  - Pruritus [Unknown]
  - Sleep disorder [Unknown]
  - Sinus congestion [Unknown]
  - Asthenia [Unknown]
  - Pyrexia [Unknown]
  - Influenza like illness [Unknown]
  - Rhinorrhoea [Unknown]
  - Fatigue [Unknown]
